FAERS Safety Report 24954698 (Version 1)
Quarter: 2025Q1

REPORT INFORMATION
  Report Type: Spontaneous
  Country: US (occurrence: US)
  Receive Date: 20250211
  Receipt Date: 20250211
  Transmission Date: 20250409
  Serious: Yes (Death, Other)
  Sender: BRISTOL-MYERS SQUIBB COMPANY
  Company Number: US-BRISTOL-MYERS SQUIBB COMPANY-2025-018539

PATIENT
  Age: 65 Year
  Sex: Male

DRUGS (1)
  1. LENALIDOMIDE [Suspect]
     Active Substance: LENALIDOMIDE
     Indication: Pancytopenia
     Dosage: TAKE 1 WHOLE CAPSULE BY MOUTH WITH WATER DAILY ON DAYS 1-21 OF EVERY 28 DAY CYCLE. DO NOT BREAK, CHE
     Route: 048

REACTIONS (1)
  - Death [Fatal]
